FAERS Safety Report 9090126 (Version 1)
Quarter: 2013Q1

REPORT INFORMATION
  Report Type: Spontaneous
  Country: GB (occurrence: GB)
  Receive Date: 20130131
  Receipt Date: 20130131
  Transmission Date: 20140127
  Serious: Yes (Disabling, Other)
  Sender: FDA-Public Use
  Company Number: GB-TEVA-382951ISR

PATIENT
  Age: 32 Year
  Sex: Male

DRUGS (17)
  1. FLUCONAZOLE [Suspect]
     Indication: CANDIDA INFECTION
     Dosage: 400 MILLIGRAM DAILY;
     Route: 048
     Dates: start: 20120601, end: 20121222
  2. TACROLIMUS [Concomitant]
  3. MYCOPHENOLATE MOFETIL [Concomitant]
  4. PREDNISOLONE [Concomitant]
  5. OMEPRAZOLE [Concomitant]
  6. CO-TRIMOXAZOLE [Concomitant]
  7. VITAMIN E SUBSTANCES [Concomitant]
  8. MULTIVITAMIN [Concomitant]
  9. CALCICHEW D3 [Concomitant]
  10. SYMBICORT [Concomitant]
  11. RISEDRONATE [Concomitant]
  12. AZITHROMYCIN [Concomitant]
  13. MEROPENEM [Concomitant]
  14. TOBRAMYCIN [Concomitant]
  15. FOSFOMYCIN [Concomitant]
  16. SIROLIMUS [Concomitant]
  17. CYCLOSPORIN [Concomitant]

REACTIONS (2)
  - Stereotypy [Recovering/Resolving]
  - Bruxism [Recovering/Resolving]
